FAERS Safety Report 5536756-4 (Version None)
Quarter: 2007Q4

REPORT INFORMATION
  Report Type: 
  Country: None (occurrence: None)
  Receive Date: 20071206
  Receipt Date: 20070524
  Transmission Date: 20080405
  Serious: Yes (Other)
  Sender: FDA-Public Use
  Company Number: US-AMGEN-US224922

PATIENT
  Sex: Female

DRUGS (6)
  1. ENBREL [Suspect]
     Indication: RHEUMATOID ARTHRITIS
     Route: 058
     Dates: start: 20060209, end: 20061219
  2. NEXIUM [Concomitant]
     Route: 048
  3. SOMA [Concomitant]
     Route: 048
  4. PROCARDIA XL [Concomitant]
     Route: 048
  5. VALIUM [Concomitant]
     Route: 048
  6. ESTRADIOL [Concomitant]
     Dates: start: 19870101

REACTIONS (2)
  - BREAST CANCER [None]
  - PIGMENTATION DISORDER [None]
